FAERS Safety Report 8440254-8 (Version None)
Quarter: 2012Q2

REPORT INFORMATION
  Report Type: 
  Country: None (occurrence: None)
  Receive Date: 20120608
  Receipt Date: 20120531
  Transmission Date: 20120825
  Serious: Yes (Hospitalization, Other)
  Sender: FDA-Public Use
  Company Number: AUR-APL-2012-01733

PATIENT
  Age: 77 Year
  Sex: Male

DRUGS (7)
  1. DIGITOXIN TAB [Concomitant]
  2. RISPERIDONE [Suspect]
     Indication: PRODUCT USED FOR UNKNOWN INDICATION
     Dosage: 0.75 MG (0.25 MG, 3 IN 1 D), 1.5 MG, 1 D,
     Dates: start: 20110801
  3. MEMANTINE HCL [Concomitant]
  4. TORSEMIDE [Concomitant]
  5. METOPROLOL SUCCINATE [Concomitant]
  6. DORZOLAMIDE [Concomitant]
  7. ASPIRIN [Concomitant]

REACTIONS (11)
  - DYSPHAGIA [None]
  - GAIT DISTURBANCE [None]
  - THERAPY CESSATION [None]
  - OPHTHALMOPLEGIA [None]
  - FALL [None]
  - INCONTINENCE [None]
  - PSYCHIATRIC SYMPTOM [None]
  - COGNITIVE DISORDER [None]
  - EXTRAPYRAMIDAL DISORDER [None]
  - MUSCLE RIGIDITY [None]
  - MUSCULOSKELETAL STIFFNESS [None]
